FAERS Safety Report 16629980 (Version 2)
Quarter: 2019Q3

REPORT INFORMATION
  Report Type: Report from Study
  Country: JP (occurrence: JP)
  Receive Date: 20190725
  Receipt Date: 20190730
  Transmission Date: 20191004
  Serious: Yes (Other)
  Sender: FDA-Public Use
  Company Number: PHJP2019JP009761

PATIENT
  Sex: Male
  Weight: 87 kg

DRUGS (13)
  1. COSENTYX [Suspect]
     Active Substance: SECUKINUMAB
     Dosage: 300 MG, 4W
     Route: 058
     Dates: start: 20170117, end: 20170509
  2. FEXOFENADINE [Concomitant]
     Active Substance: FEXOFENADINE HYDROCHLORIDE
     Indication: PSORIASIS
     Dosage: 60 MG, BID
     Route: 048
  3. COSENTYX [Suspect]
     Active Substance: SECUKINUMAB
     Dosage: 300 MG, 4W
     Route: 058
     Dates: start: 20170912, end: 20180508
  4. PEKIRON [Concomitant]
     Indication: TINEA CRURIS
     Dosage: 1 G, UNK
     Route: 065
     Dates: start: 20150721
  5. MYSER [Concomitant]
     Indication: PSORIASIS
     Dosage: 2 G, UNK
     Route: 061
     Dates: start: 20170411
  6. SODIUM SALICYLATE [Concomitant]
     Active Substance: SODIUM SALICYLATE
     Indication: PSORIASIS
     Dosage: 2 G, UNK
     Route: 061
     Dates: start: 20170411
  7. OTEZLA [Suspect]
     Active Substance: APREMILAST
     Indication: PSORIASIS
     Dosage: 30 MG, UNK
     Route: 048
     Dates: start: 20170627, end: 20170824
  8. LAMISIL [Concomitant]
     Active Substance: TERBINAFINE HYDROCHLORIDE
     Indication: TINEA CRURIS
     Dosage: 1 G, UNK
     Route: 065
     Dates: start: 20130702
  9. VALTREX [Concomitant]
     Active Substance: VALACYCLOVIR HYDROCHLORIDE
     Indication: GENITAL HERPES
     Dosage: 500 MG, UNK
     Route: 048
     Dates: start: 20130702
  10. COSENTYX [Suspect]
     Active Substance: SECUKINUMAB
     Dosage: UNK UNK, 4W
     Route: 058
     Dates: start: 20170606, end: 20170725
  11. ZOVIRAX [Concomitant]
     Active Substance: ACYCLOVIR
     Indication: GENITAL HERPES
     Dosage: 0.5 G, UNK
     Route: 065
     Dates: start: 20150721
  12. LAMISIL [Concomitant]
     Active Substance: TERBINAFINE HYDROCHLORIDE
     Indication: TINEA CRURIS
     Dosage: 125 MG, UNK
     Route: 048
     Dates: start: 20170117
  13. COSENTYX [Suspect]
     Active Substance: SECUKINUMAB
     Indication: PSORIASIS
     Dosage: 300 MG, QW
     Route: 058
     Dates: start: 20161122, end: 20161220

REACTIONS (2)
  - Diarrhoea [Unknown]
  - Chlamydial infection [Unknown]
